FAERS Safety Report 5188984-8 (Version None)
Quarter: 2006Q4

REPORT INFORMATION
  Report Type: 
  Country: None (occurrence: None)
  Receive Date: 20061221
  Receipt Date: 20041221
  Transmission Date: 20070319
  Serious: No
  Sender: FDA-Public Use
  Company Number: US-AMGEN-US104134

PATIENT
  Sex: Female
  Weight: 69.9 kg

DRUGS (7)
  1. ENBREL [Suspect]
     Indication: RHEUMATOID ARTHRITIS
     Route: 058
     Dates: start: 20040401
  2. BENICAR [Concomitant]
     Dates: start: 20041121
  3. FOLIC ACID [Concomitant]
     Dates: start: 20040401
  4. MTX [Concomitant]
     Route: 058
     Dates: start: 20031001
  5. CELEBREX [Concomitant]
     Dates: start: 19990101
  6. LEXAPRO [Concomitant]
     Dates: start: 20031001
  7. HYDROCODONE BITARTRATE [Concomitant]
     Dates: start: 20031001

REACTIONS (1)
  - VISION BLURRED [None]
